FAERS Safety Report 13299340 (Version 1)
Quarter: 2017Q1

REPORT INFORMATION
  Report Type: Spontaneous
  Country: CA (occurrence: CA)
  Receive Date: 20170306
  Receipt Date: 20170306
  Transmission Date: 20170428
  Serious: Yes (Death)
  Sender: FDA-Public Use
  Company Number: CA-SA-2017SA034162

PATIENT
  Age: 29 Year
  Sex: Female
  Weight: 54 kg

DRUGS (3)
  1. LANTUS [Suspect]
     Active Substance: INSULIN GLARGINE
     Indication: TYPE 1 DIABETES MELLITUS
     Dosage: DOSAGE FORM: SOLUTION SUBCUTANEOUS
     Route: 065
  2. PAROXETINE. [Concomitant]
     Active Substance: PAROXETINE
  3. NOVORAPID [Suspect]
     Active Substance: INSULIN ASPART
     Indication: TYPE 1 DIABETES MELLITUS
     Dosage: DOSAGE FORM: SOLUTION SUBCUTANEOUS
     Route: 065

REACTIONS (2)
  - Intentional overdose [Fatal]
  - Completed suicide [Fatal]
